FAERS Safety Report 13371624 (Version 1)
Quarter: 2017Q1

REPORT INFORMATION
  Report Type: Spontaneous
  Country: US (occurrence: US)
  Receive Date: 20170324
  Receipt Date: 20170324
  Transmission Date: 20170429
  Serious: No
  Sender: FDA-Public Use
  Company Number: US-009507513-1703USA010837

PATIENT
  Age: 60 Year
  Sex: Male

DRUGS (3)
  1. HEXADROL [Suspect]
     Active Substance: DEXAMETHASONE
     Indication: BLOOD BILIRUBIN INCREASED
     Dosage: 40MG, DAILY
     Route: 048
  2. MESNA. [Suspect]
     Active Substance: MESNA
  3. CYCLOPHOSPHAMIDE. [Suspect]
     Active Substance: CYCLOPHOSPHAMIDE
     Dosage: 750 MG/M2, ONCE
     Route: 042

REACTIONS (1)
  - Drug ineffective [Unknown]
